FAERS Safety Report 5169283-7 (Version None)
Quarter: 2006Q4

REPORT INFORMATION
  Report Type: 
  Country: None (occurrence: None)
  Receive Date: 20061127
  Receipt Date: 20061127
  Transmission Date: 20070319
  Serious: Yes (Other)
  Sender: FDA-Public Use
  Company Number: SPV1-2006-01867

PATIENT
  Age: 66 Year
  Sex: Female

DRUGS (1)
  1. ANAGRELIDE HCL [Suspect]
     Indication: ESSENTIAL THROMBOCYTHAEMIA
     Dosage: 2MG DAILY, ORAL
     Route: 048

REACTIONS (2)
  - PLATELET COUNT INCREASED [None]
  - SYSTEMIC LUPUS ERYTHEMATOSUS [None]
